FAERS Safety Report 21560069 (Version 1)
Quarter: 2022Q4

REPORT INFORMATION
  Report Type: Report from Study
  Country: US (occurrence: US)
  Receive Date: 20221107
  Receipt Date: 20221107
  Transmission Date: 20230113
  Serious: No
  Sender: FDA-Public Use
  Company Number: US-ABBVIE-4150796

PATIENT
  Age: 54 Year
  Sex: Female

DRUGS (6)
  1. HUMIRA [Suspect]
     Active Substance: ADALIMUMAB
     Indication: Psoriatic arthropathy
     Route: 058
  2. Hydrocodeine (Dihydrocodeine phosphate) [Concomitant]
     Indication: Pain
  3. Ibuprofen (Ibuprofen sodium) [Concomitant]
     Indication: Pain
  4. Amitriptyline (Amitriptyline pamoate) [Concomitant]
     Indication: Anxiety
  5. LYRICA [Concomitant]
     Active Substance: PREGABALIN
     Indication: Fibromyalgia
  6. WELLBUTRIN [Concomitant]
     Active Substance: BUPROPION HYDROCHLORIDE
     Indication: Pain

REACTIONS (5)
  - Fibromyalgia [Unknown]
  - Rib fracture [Recovering/Resolving]
  - Bronchitis [Not Recovered/Not Resolved]
  - Pneumonia [Not Recovered/Not Resolved]
  - Ear infection [Not Recovered/Not Resolved]

NARRATIVE: CASE EVENT DATE: 20220901
